FAERS Safety Report 4643523-2 (Version None)
Quarter: 2005Q2

REPORT INFORMATION
  Report Type: 
  Country: None (occurrence: None)
  Receive Date: 20050425
  Receipt Date: 20050412
  Transmission Date: 20051028
  Serious: Yes (Hospitalization)
  Sender: FDA-Public Use
  Company Number: JP-JNJFOC-20041206952

PATIENT
  Sex: Female
  Weight: 48 kg

DRUGS (23)
  1. REMICADE [Suspect]
     Route: 042
  2. REMICADE [Suspect]
     Route: 042
  3. REMICADE [Suspect]
     Indication: RHEUMATOID ARTHRITIS
     Route: 042
  4. RHEUMATREX [Concomitant]
     Route: 049
  5. RHEUMATREX [Concomitant]
     Route: 049
  6. RHEUMATREX [Concomitant]
     Indication: RHEUMATOID ARTHRITIS
     Route: 049
  7. PSL [Concomitant]
     Route: 049
  8. PSL [Concomitant]
     Route: 049
  9. PSL [Concomitant]
     Route: 049
  10. PSL [Concomitant]
     Indication: RHEUMATOID ARTHRITIS
     Route: 049
  11. VOLTAREN [Concomitant]
     Indication: RHEUMATOID ARTHRITIS
  12. RINGEREAZE [Concomitant]
     Indication: RHEUMATOID ARTHRITIS
     Route: 049
  13. ONON [Concomitant]
     Route: 049
  14. ZADITEN [Concomitant]
     Route: 049
  15. FERRUM [Concomitant]
     Route: 049
  16. FASTIC [Concomitant]
     Route: 049
  17. MUCOSTA [Concomitant]
     Route: 049
  18. CYANOCOBALAMIN [Concomitant]
     Route: 049
  19. ONEALPHA [Concomitant]
     Route: 049
  20. THEOLONG [Concomitant]
     Route: 049
  21. FOLIAMIN [Concomitant]
     Route: 049
  22. WANALFA [Concomitant]
     Route: 049
  23. MONTELUKAST SODIUM [Concomitant]

REACTIONS (2)
  - DRUG INEFFECTIVE [None]
  - TUBERCULOUS PLEURISY [None]
